FAERS Safety Report 15460212 (Version 1)
Quarter: 2018Q4

REPORT INFORMATION
  Report Type: Spontaneous
  Country: US (occurrence: PE)
  Receive Date: 20181003
  Receipt Date: 20181003
  Transmission Date: 20190204
  Serious: Yes (Other)
  Sender: FDA-Public Use
  Company Number: US-SUNOVION-2018SUN003774

PATIENT
  Sex: Female

DRUGS (1)
  1. INDACATEROL AND GLYCOPYRROLATE [Suspect]
     Active Substance: GLYCOPYRROLATE\INDACATEROL MALEATE
     Indication: BRONCHIECTASIS
     Dosage: UNK UNK, QD
     Route: 055
     Dates: start: 20180401

REACTIONS (4)
  - Product use in unapproved indication [Unknown]
  - Bronchiectasis [Unknown]
  - Malaise [Unknown]
  - Cough [Unknown]
